FAERS Safety Report 7678752-7 (Version None)
Quarter: 2011Q3

REPORT INFORMATION
  Report Type: 
  Country: None (occurrence: None)
  Receive Date: 20110811
  Receipt Date: 20110802
  Transmission Date: 20111222
  Serious: Yes (Other)
  Sender: FDA-Public Use
  Company Number: FR-ASTRAZENECA-2011SE20449

PATIENT
  Age: 10907 Day
  Sex: Female

DRUGS (3)
  1. TIMOFEROL [Concomitant]
  2. SPASFON [Concomitant]
  3. OMEPRAZOLE [Suspect]
     Indication: ABDOMINAL PAIN UPPER
     Route: 048
     Dates: start: 20110326, end: 20110401

REACTIONS (4)
  - ACTIVATED PARTIAL THROMBOPLASTIN TIME PROLONGED [None]
  - HAEMORRHAGE [None]
  - PLATELET COUNT DECREASED [None]
  - MATERNAL EXPOSURE DURING PREGNANCY [None]
